FAERS Safety Report 4811175-4 (Version None)
Quarter: 2005Q4

REPORT INFORMATION
  Report Type: 
  Country: None (occurrence: None)
  Receive Date: 20051025
  Receipt Date: 20051013
  Transmission Date: 20060501
  Serious: Yes (Other)
  Sender: FDA-Public Use
  Company Number: 2005-10-0862

PATIENT
  Sex: Male

DRUGS (4)
  1. PEG-INTERFERON INJECTABLE [Suspect]
  2. . [Concomitant]
  3. RIBAVIRIN [Suspect]
     Dosage: ORAL
     Route: 048
  4. . [Concomitant]

REACTIONS (2)
  - LYMPHADENOPATHY [None]
  - TESTICULAR SWELLING [None]
